FAERS Safety Report 15233639 (Version 1)
Quarter: 2018Q3

REPORT INFORMATION
  Report Type: Spontaneous
  Country: US (occurrence: US)
  Receive Date: 20180802
  Receipt Date: 20180802
  Transmission Date: 20181010
  Serious: Yes (Hospitalization, Other)
  Sender: FDA-Public Use
  Company Number: US-LINDE-US-LHC-2018186

PATIENT
  Age: 41 Year
  Sex: Female

DRUGS (1)
  1. CARBON DIOXIDE (GENERIC) [Suspect]
     Active Substance: CARBON DIOXIDE
     Indication: HYSTEROSALPINGO-OOPHORECTOMY
     Dosage: DURING THE PROCEDURE, 15MM HG OF CARBON DIOXIDE WAS USED TO INSUFFLATE THE ABDOMEN

REACTIONS (3)
  - Acute kidney injury [Recovered/Resolved]
  - Abdominal compartment syndrome [Recovered/Resolved]
  - Pneumoperitoneum [Recovered/Resolved]
